FAERS Safety Report 20311059 (Version 1)
Quarter: 2022Q1

REPORT INFORMATION
  Report Type: Spontaneous
  Country: CN (occurrence: CN)
  Receive Date: 20220107
  Receipt Date: 20220107
  Transmission Date: 20220423
  Serious: Yes (Other)
  Sender: FDA-Public Use
  Company Number: CN-PFIZER INC-202200001160

PATIENT
  Age: 28 Year
  Sex: Female
  Weight: 62.9 kg

DRUGS (3)
  1. CARBOPROST TROMETHAMINE [Suspect]
     Active Substance: CARBOPROST TROMETHAMINE
     Indication: Uterine contractions abnormal
     Dosage: 250 UG, 1X/DAY
     Route: 030
     Dates: start: 20211227, end: 20211227
  2. CARBOPROST METHYL [Suspect]
     Active Substance: CARBOPROST METHYL
     Indication: Uterine contractions abnormal
     Dosage: 1 MG, 1X/DAY
     Route: 060
     Dates: start: 20211227, end: 20211227
  3. CARBETOCIN [Suspect]
     Active Substance: CARBETOCIN
     Indication: Uterine contractions abnormal
     Dosage: 100 UG, 1X/DAY
     Route: 041
     Dates: start: 20211227, end: 20211227

REACTIONS (2)
  - Abdominal discomfort [Recovering/Resolving]
  - Vomiting [Recovered/Resolved]

NARRATIVE: CASE EVENT DATE: 20211227
